FAERS Safety Report 12997930 (Version 1)
Quarter: 2016Q4

REPORT INFORMATION
  Report Type: Spontaneous
  Country: US (occurrence: US)
  Receive Date: 20161205
  Receipt Date: 20161205
  Transmission Date: 20170207
  Serious: Yes (Life-Threatening, Hospitalization)
  Sender: FDA-Public Use
  Company Number: None

PATIENT
  Age: 33 Year
  Sex: Female
  Weight: 72.58 kg

DRUGS (1)
  1. MIRENA [Suspect]
     Active Substance: LEVONORGESTREL
     Dates: start: 20120406, end: 20151123

REACTIONS (3)
  - Placenta accreta [None]
  - Postpartum haemorrhage [None]
  - Complication associated with device [None]

NARRATIVE: CASE EVENT DATE: 20161005
